FAERS Safety Report 8038062-5 (Version None)
Quarter: 2012Q1

REPORT INFORMATION
  Report Type: 
  Country: None (occurrence: None)
  Receive Date: 20120111
  Receipt Date: 20120109
  Transmission Date: 20120608
  Serious: Yes (Death)
  Sender: FDA-Public Use
  Company Number: US-MERCK-1201USA01076

PATIENT
  Sex: Male

DRUGS (2)
  1. ISENTRESS [Suspect]
     Route: 048
  2. NORVIR [Suspect]
     Route: 065

REACTIONS (1)
  - INFLUENZA [None]
